FAERS Safety Report 5738670-8 (Version None)
Quarter: 2008Q2

REPORT INFORMATION
  Report Type: 
  Country: None (occurrence: None)
  Receive Date: 20080514
  Receipt Date: 20080514
  Transmission Date: 20081010
  Serious: Yes (Other)
  Sender: FDA-Public Use
  Company Number: None

PATIENT
  Sex: Female
  Weight: 58.0604 kg

DRUGS (1)
  1. METOCLOPRAMIDE [Suspect]
     Indication: VOMITING
     Dosage: 10 MG SEVERAL TIMES A DAY IN HOSPITAL
     Dates: start: 20071230

REACTIONS (4)
  - DYSKINESIA [None]
  - DYSTONIA [None]
  - PAIN [None]
  - TREMOR [None]
